FAERS Safety Report 5033233-4 (Version None)
Quarter: 2006Q2

REPORT INFORMATION
  Report Type: 
  Country: None (occurrence: None)
  Receive Date: 20060620
  Receipt Date: 20060608
  Transmission Date: 20061013
  Serious: No
  Sender: FDA-Public Use
  Company Number: 2006-143787-NL

PATIENT
  Sex: Male

DRUGS (2)
  1. MIRTAZAPINE [Suspect]
     Dosage: DF
     Route: 048
  2. MIRTAZAPINE [Concomitant]

REACTIONS (3)
  - DRY SKIN [None]
  - HYPERSENSITIVITY [None]
  - MYOCARDIAL INFARCTION [None]
